FAERS Safety Report 7163448-0 (Version None)
Quarter: 2010Q4

REPORT INFORMATION
  Report Type: 
  Country: None (occurrence: None)
  Receive Date: 20101201
  Receipt Date: 20101116
  Transmission Date: 20110411
  Serious: Yes (Hospitalization)
  Sender: FDA-Public Use
  Company Number: 2010AP002442

PATIENT
  Age: 55 Year
  Sex: Female

DRUGS (2)
  1. CYCLOSPORINE [Suspect]
     Indication: PUSTULAR PSORIASIS
     Dosage: 5 MG/KG/QD
  2. METHOTREXATE [Concomitant]

REACTIONS (12)
  - ABDOMINAL PAIN [None]
  - B-CELL LYMPHOMA [None]
  - BONE LESION [None]
  - CONDITION AGGRAVATED [None]
  - FATIGUE [None]
  - HYPERCHOLESTEROLAEMIA [None]
  - HYPERKALAEMIA [None]
  - HYPERTENSION [None]
  - NAUSEA [None]
  - PUSTULAR PSORIASIS [None]
  - SMALL INTESTINAL OBSTRUCTION [None]
  - WEIGHT DECREASED [None]
